FAERS Safety Report 22604277 (Version 1)
Quarter: 2023Q2

REPORT INFORMATION
  Report Type: Spontaneous
  Country: JP (occurrence: JP)
  Receive Date: 20230615
  Receipt Date: 20230615
  Transmission Date: 20230722
  Serious: Yes (Hospitalization)
  Sender: FDA-Public Use
  Company Number: JP-STRIDES ARCOLAB LIMITED-2023SP009426

PATIENT
  Age: 73 Year
  Sex: Male

DRUGS (20)
  1. DEXAMETHASONE [Suspect]
     Active Substance: DEXAMETHASONE
     Indication: Angiocentric lymphoma
     Dosage: 40 MILLIGRAM/KILOGRAM, CYCLICAL, ON DAY 2-4 UNDER SMILE THERAPY
     Route: 065
     Dates: start: 2022
  2. ETOPOSIDE [Suspect]
     Active Substance: ETOPOSIDE
     Indication: Angiocentric lymphoma
     Dosage: 50 MILLIGRAM/SQ. METER, CYCLICAL, ON DAY 2-4 UNDER SMILE THERAP
     Route: 065
     Dates: start: 2022
  3. METHOTREXATE [Suspect]
     Active Substance: METHOTREXATE
     Indication: Angiocentric lymphoma
     Dosage: 1 GRAM PER SQUARE METRE, CYCLICAL, ON DAY 1 UNDER SMILE THERAPY
     Route: 065
     Dates: start: 2022
  4. AMLODIPINE [Suspect]
     Active Substance: AMLODIPINE BESYLATE
     Indication: Cardiac aneurysm
     Dosage: UNK
     Route: 065
  5. AMLODIPINE [Suspect]
     Active Substance: AMLODIPINE BESYLATE
     Indication: Myocardial infarction
  6. WARFARIN [Suspect]
     Active Substance: WARFARIN
     Indication: Cardiac aneurysm
     Dosage: UNK
     Route: 065
  7. WARFARIN [Suspect]
     Active Substance: WARFARIN
     Indication: Myocardial infarction
  8. IFOSFAMIDE [Suspect]
     Active Substance: IFOSFAMIDE
     Indication: Angiocentric lymphoma
     Dosage: 750 MILLIGRAM/SQ. METER, CYCLICAL, ON DAY 2-4 UNDER SMILE THERAPY
     Route: 065
     Dates: start: 2022
  9. ASPARAGINASE [Suspect]
     Active Substance: ASPARAGINASE
     Indication: Angiocentric lymphoma
     Dosage: UNK, CYCLICAL, 3000U/M2 ON DAYS 8,10,12,14,16,18 AND 20 UNDER SMILE THERAPY
     Route: 065
     Dates: start: 2022
  10. TOZINAMERAN [Concomitant]
     Active Substance: TOZINAMERAN
     Indication: COVID-19 immunisation
     Dosage: UNK, SINGLE (RECEIVED FIRST DOSE)
     Route: 065
     Dates: start: 202106
  11. TOZINAMERAN [Concomitant]
     Active Substance: TOZINAMERAN
     Dosage: UNK, SINGLE (RECEIVED SECOND DOSE)
     Route: 065
     Dates: start: 202107
  12. CLOPIDOGREL [Concomitant]
     Active Substance: CLOPIDOGREL BISULFATE
     Indication: Cardiac aneurysm
     Dosage: UNK
     Route: 065
  13. CLOPIDOGREL [Concomitant]
     Active Substance: CLOPIDOGREL BISULFATE
     Indication: Myocardial infarction
  14. CARVEDILOL [Concomitant]
     Active Substance: CARVEDILOL
     Indication: Hypertension
     Dosage: UNK
     Route: 065
  15. ENALAPRIL [Concomitant]
     Active Substance: ENALAPRIL
     Indication: Hypertension
     Dosage: UNK
     Route: 065
  16. LANSOPRAZOLE [Concomitant]
     Active Substance: LANSOPRAZOLE
     Indication: Gastrooesophageal reflux prophylaxis
     Dosage: UNK
     Route: 065
  17. NICORANDIL [Concomitant]
     Active Substance: NICORANDIL
     Indication: Cardiac aneurysm
     Dosage: UNK
     Route: 065
  18. NICORANDIL [Concomitant]
     Active Substance: NICORANDIL
     Indication: Myocardial infarction
  19. ROSUVASTATIN [Concomitant]
     Active Substance: ROSUVASTATIN
     Indication: Dyslipidaemia
     Dosage: UNK
     Route: 065
  20. TOPIROXOSTAT [Concomitant]
     Active Substance: TOPIROXOSTAT
     Indication: Hyperuricaemia
     Dosage: UNK
     Route: 065

REACTIONS (7)
  - Renal failure [Unknown]
  - Melaena [Recovered/Resolved]
  - Drug clearance decreased [Unknown]
  - Gastric ulcer haemorrhage [Recovered/Resolved]
  - Decreased appetite [Unknown]
  - Toxicity to various agents [Unknown]
  - Off label use [Unknown]

NARRATIVE: CASE EVENT DATE: 20220101
